FAERS Safety Report 22173997 (Version 1)
Quarter: 2023Q2

REPORT INFORMATION
  Report Type: Spontaneous
  Country: RU (occurrence: RU)
  Receive Date: 20230404
  Receipt Date: 20230404
  Transmission Date: 20230721
  Serious: Yes (Other)
  Sender: FDA-Public Use
  Company Number: RU-ABBOTT-2022A-1355892

PATIENT
  Age: 9 Year
  Sex: Female
  Weight: 32 kg

DRUGS (16)
  1. CREON [Suspect]
     Active Substance: PANCRELIPASE AMYLASE\PANCRELIPASE LIPASE\PANCRELIPASE PROTEASE
     Indication: Cystic fibrosis gastrointestinal disease
     Dosage: 10 000
     Route: 048
     Dates: start: 20220328, end: 20220329
  2. FENOTEROL HYDROBROMIDE\IPRATROPIUM BROMIDE [Concomitant]
     Active Substance: FENOTEROL HYDROBROMIDE\IPRATROPIUM BROMIDE
     Indication: Product used for unknown indication
     Route: 055
  3. FENOTEROL HYDROBROMIDE\IPRATROPIUM BROMIDE [Concomitant]
     Active Substance: FENOTEROL HYDROBROMIDE\IPRATROPIUM BROMIDE
     Indication: Product used for unknown indication
     Route: 055
  4. HEPTRAL [Suspect]
     Active Substance: ADEMETIONINE
     Indication: Product used for unknown indication
     Route: 048
  5. HEPTRAL [Suspect]
     Active Substance: ADEMETIONINE
     Indication: Product used for unknown indication
     Route: 065
  6. COLISTIN [Concomitant]
     Active Substance: COLISTIN
     Indication: Product used for unknown indication
     Route: 055
  7. COLISTIN [Concomitant]
     Active Substance: COLISTIN
     Indication: Product used for unknown indication
     Route: 055
  8. NASONEX [Concomitant]
     Active Substance: MOMETASONE FUROATE
     Indication: Product used for unknown indication
     Route: 045
  9. NASONEX [Concomitant]
     Active Substance: MOMETASONE FUROATE
     Indication: Product used for unknown indication
     Route: 045
  10. CYPROTERONE [Concomitant]
     Active Substance: CYPROTERONE
     Indication: Product used for unknown indication
     Route: 048
  11. FLUIMUCIL ANTIBIOTIC [Concomitant]
     Indication: Product used for unknown indication
  12. PULMOZYME [Concomitant]
     Active Substance: DORNASE ALFA
     Indication: Product used for unknown indication
     Route: 055
  13. URSODIOL [Concomitant]
     Active Substance: URSODIOL
     Indication: Product used for unknown indication
     Route: 048
  14. URSODIOL [Concomitant]
     Active Substance: URSODIOL
     Indication: Product used for unknown indication
     Route: 048
  15. BRONCHITOL PHARMAXIS [Concomitant]
     Indication: Product used for unknown indication
     Route: 055
  16. BRONCHITOL PHARMAXIS [Concomitant]
     Indication: Product used for unknown indication
     Route: 055

REACTIONS (2)
  - Abdominal pain [Recovered/Resolved]
  - Diarrhoea [Recovered/Resolved]

NARRATIVE: CASE EVENT DATE: 20220329
